FAERS Safety Report 25980036 (Version 1)
Quarter: 2025Q4

REPORT INFORMATION
  Report Type: Spontaneous
  Country: US (occurrence: None)
  Receive Date: 20251029
  Receipt Date: 20251029
  Transmission Date: 20260117
  Serious: Yes (Other)
  Sender: FDA-CTU
  Company Number: None

PATIENT
  Age: 72 Year
  Sex: Male

DRUGS (1)
  1. BIOFREEZE [Suspect]
     Active Substance: MENTHOL
     Indication: Back pain
     Dosage: FREQUENCY : 4 TIMES A DAY;?
     Route: 061
     Dates: start: 20251024, end: 20251024

REACTIONS (7)
  - Product delivery mechanism issue [None]
  - Testicular injury [None]
  - Thermal burn [None]
  - Testicular pain [None]
  - Skin burning sensation [None]
  - Accidental exposure to product [None]
  - Complication associated with device [None]

NARRATIVE: CASE EVENT DATE: 20251024
